FAERS Safety Report 13441761 (Version 4)
Quarter: 2017Q3

REPORT INFORMATION
  Report Type: Report from Study
  Country: US (occurrence: US)
  Receive Date: 20170413
  Receipt Date: 20170726
  Transmission Date: 20171127
  Serious: Yes (Life-Threatening, Hospitalization, Other)
  Sender: FDA-Public Use
  Company Number: US-BAXALTA-2017BLT002927

PATIENT
  Age: 18 Year
  Sex: Female
  Weight: 115 kg

DRUGS (12)
  1. PEGASPARGASE [Suspect]
     Active Substance: PEGASPARGASE
     Indication: ACUTE LYMPHOCYTIC LEUKAEMIA
     Dosage: 2500 IU/M2, REGIMEN #1
     Route: 042
     Dates: start: 20170104, end: 20170306
  2. PEGASPARGASE [Suspect]
     Active Substance: PEGASPARGASE
     Dosage: 5500 IU, ONCE
     Route: 042
     Dates: start: 20170306, end: 20170306
  3. CYTARABINE. [Suspect]
     Active Substance: CYTARABINE
     Indication: CHEMOTHERAPY
     Dosage: 160 MG, DAYS 1-4, 8-11; REGIMEN #1
     Route: 042
     Dates: start: 20170210
  4. CYTARABINE. [Suspect]
     Active Substance: CYTARABINE
     Dosage: DAYS 29-32, 36-39; REGIMEN #2
     Route: 042
     Dates: start: 20170320
  5. METHOTREXATE. [Suspect]
     Active Substance: METHOTREXATE
     Indication: CHEMOTHERAPY
     Dosage: 15 MG, REGIMEN #1
     Route: 037
     Dates: start: 20170109
  6. CYCLOPHOSPHAMIDE. [Suspect]
     Active Substance: CYCLOPHOSPHAMIDE
     Indication: CHEMOTHERAPY
     Dosage: 2200 MG SINGLE; REGIMEN #1
     Route: 042
     Dates: start: 20170210
  7. METHOTREXATE. [Suspect]
     Active Substance: METHOTREXATE
     Dosage: 15 MG, 1X A WEEK, REGIMEN #2
     Route: 037
     Dates: start: 20170210
  8. VINCRISTINE [Suspect]
     Active Substance: VINCRISTINE
     Dosage: DAY 15, 22, 43, 50; REGIMEN #2
     Route: 042
     Dates: start: 20170227
  9. CYCLOPHOSPHAMIDE. [Suspect]
     Active Substance: CYCLOPHOSPHAMIDE
     Dosage: 2240 MG, SINGLE; REGIMEN #2
     Route: 042
     Dates: start: 20170320
  10. MERCAPTOPURINE. [Suspect]
     Active Substance: MERCAPTOPURINE
     Indication: CHEMOTHERAPY
     Dosage: 150MG X2D, 125MG X5D, DAILY 14D; REGIMEN #1
     Route: 048
     Dates: start: 20170210
  11. VINCRISTINE [Suspect]
     Active Substance: VINCRISTINE
     Indication: CHEMOTHERAPY
     Dosage: 2 MG, UNK
     Route: 042
     Dates: start: 20170210
  12. MERCAPTOPURINE. [Suspect]
     Active Substance: MERCAPTOPURINE
     Dosage: 150MG X3D, 125MG X4D, DAILY 14D; REGIMEN #2
     Route: 048
     Dates: start: 20170320

REACTIONS (4)
  - Febrile neutropenia [Recovered/Resolved]
  - Febrile neutropenia [Recovered/Resolved]
  - Vascular access complication [Unknown]
  - Anaphylactic reaction [Recovered/Resolved]

NARRATIVE: CASE EVENT DATE: 20170227
